FAERS Safety Report 23268487 (Version 1)
Quarter: 2023Q4

REPORT INFORMATION
  Report Type: Spontaneous
  Country: ES (occurrence: ES)
  Receive Date: 20231206
  Receipt Date: 20231206
  Transmission Date: 20240110
  Serious: Yes (Hospitalization)
  Sender: FDA-Public Use
  Company Number: ES-PFIZER INC-PV202300193086

PATIENT
  Age: 70 Year
  Sex: Male

DRUGS (4)
  1. LINEZOLID [Suspect]
     Active Substance: LINEZOLID
     Indication: Prophylaxis
     Dosage: 600 MG, 2X/DAY
     Route: 042
  2. LINEZOLID [Suspect]
     Active Substance: LINEZOLID
     Dosage: 600 MG, 2X/DAY
     Route: 048
  3. INSULIN NOS [Concomitant]
     Active Substance: INSULIN NOS
     Dosage: 35 IU (17 U DEGLUDEC AND 18 U GLULISINE DIVIDED WITH MEALS)
  4. INSULIN NOS [Concomitant]
     Active Substance: INSULIN NOS
     Dosage: REDUCED BY 70% TO 10 U OF DEGLUDEC

REACTIONS (1)
  - Hypoglycaemia [Recovered/Resolved]
